FAERS Safety Report 15560804 (Version 1)
Quarter: 2018Q4

REPORT INFORMATION
  Report Type: Spontaneous
  Country: US (occurrence: US)
  Receive Date: 20181023
  Receipt Date: 20181023
  Transmission Date: 20190205
  Serious: No
  Sender: FDA-Public Use
  Company Number: None

PATIENT
  Age: 37 Year
  Sex: Female
  Weight: 121.56 kg

DRUGS (1)
  1. OTREXUP [Suspect]
     Active Substance: METHOTREXATE
     Indication: PSORIATIC ARTHROPATHY
     Dosage: INJECT 22.5MG (0.4ML) SUBCUTANEOUSLY EVERY WEEK
     Route: 058
     Dates: start: 201702

REACTIONS (2)
  - Stress [None]
  - Condition aggravated [None]
